FAERS Safety Report 6230733-6 (Version None)
Quarter: 2009Q2

REPORT INFORMATION
  Report Type: 
  Country: None (occurrence: None)
  Receive Date: 20090616
  Receipt Date: 20090604
  Transmission Date: 20091009
  Serious: Yes (Hospitalization, Other)
  Sender: FDA-Public Use
  Company Number: PT-JNJFOC-20090200548

PATIENT
  Age: 58 Year
  Sex: Female
  Weight: 73 kg

DRUGS (7)
  1. REMICADE [Suspect]
     Route: 042
  2. REMICADE [Suspect]
     Indication: RHEUMATOID ARTHRITIS
     Route: 042
  3. ACETAMINOPHEN [Concomitant]
     Indication: PREMEDICATION
     Route: 042
  4. PREDNISOLONE [Concomitant]
     Indication: PREMEDICATION
     Route: 042
  5. HYDROXIZINE [Concomitant]
     Indication: PREMEDICATION
     Route: 030
  6. METHOTREXATE [Concomitant]
     Indication: RHEUMATOID ARTHRITIS
     Route: 048
  7. CO-APROVEL [Concomitant]
     Indication: HYPERTENSION

REACTIONS (11)
  - BLOOD CREATINE INCREASED [None]
  - BLOOD PHOSPHORUS INCREASED [None]
  - CHEST DISCOMFORT [None]
  - DRUG INTOLERANCE [None]
  - DYSPNOEA [None]
  - FLUSHING [None]
  - HYPERTENSION [None]
  - INFUSION RELATED REACTION [None]
  - LIP OEDEMA [None]
  - OEDEMA PERIPHERAL [None]
  - RHEUMATOID ARTHRITIS [None]
